FAERS Safety Report 5179034-8 (Version None)
Quarter: 2006Q4

REPORT INFORMATION
  Report Type: 
  Country: None (occurrence: None)
  Receive Date: 20061219
  Receipt Date: 20061214
  Transmission Date: 20070319
  Serious: Yes (Death, Life-Threatening)
  Sender: FDA-Public Use
  Company Number: CA-NOVOPROD-259327

PATIENT
  Age: 19 Year
  Sex: Male

DRUGS (1)
  1. NIASTASE [Suspect]
     Indication: INJURY
     Dates: start: 20061212

REACTIONS (1)
  - DEATH [None]
